FAERS Safety Report 6368901-5 (Version None)
Quarter: 2009Q3

REPORT INFORMATION
  Report Type: 
  Country: None (occurrence: None)
  Receive Date: 20090916
  Receipt Date: 20090907
  Transmission Date: 20100115
  Serious: Yes (Hospitalization)
  Sender: FDA-Public Use
  Company Number: 2009SP024127

PATIENT
  Age: 84 Year
  Sex: Male
  Weight: 83 kg

DRUGS (8)
  1. BETAMATHASONE DIPROPIONATE [Suspect]
     Indication: RASH
     Dosage: QD;TOP
     Route: 061
  2. CARBAMAZEPINE [Suspect]
     Indication: EPILEPSY
     Dosage: 400 MG;QD
  3. ASPIRIN [Concomitant]
  4. FUROSEMIDE [Concomitant]
  5. LORATADINE [Concomitant]
  6. PERINDOPRIL [Concomitant]
  7. TEMAZEPAM [Concomitant]
  8. VENLAFAXINE HYDROCHLORIDE [Concomitant]

REACTIONS (3)
  - DERMATITIS EXFOLIATIVE [None]
  - LETHARGY [None]
  - OVERDOSE [None]
